FAERS Safety Report 8914307 (Version 1)
Quarter: 2012Q4

REPORT INFORMATION
  Report Type: 
  Country: US (occurrence: US)
  Receive Date: 20121118
  Receipt Date: 20121118
  Transmission Date: 20130627
  Serious: Yes (Other)
  Sender: FDA-Public Use
  Company Number: US-BRISTOL-MYERS SQUIBB COMPANY-17115817

PATIENT
  Sex: Female

DRUGS (3)
  1. ABILIFY [Suspect]
     Indication: POST-TRAUMATIC STRESS DISORDER
     Route: 048
     Dates: end: 201206
  2. ABILIFY [Suspect]
     Indication: DEPRESSION
     Route: 048
     Dates: end: 201206
  3. EFFEXOR [Suspect]

REACTIONS (1)
  - Hypothyroidism [Unknown]
